FAERS Safety Report 5077966-2 (Version None)
Quarter: 2006Q3

REPORT INFORMATION
  Report Type: 
  Country: None (occurrence: None)
  Receive Date: 20060714
  Receipt Date: 20060127
  Transmission Date: 20061208
  Serious: Yes (Other)
  Sender: FDA-Public Use
  Company Number: 24282

PATIENT
  Age: 14 Year
  Sex: Female
  Weight: 102 kg

DRUGS (1)
  1. VECURONIUM BROMIDE [Suspect]
     Indication: INTUBATION
     Dosage: 10 MG/IV X 3
     Dates: start: 20060126

REACTIONS (1)
  - DRUG INEFFECTIVE [None]
